FAERS Safety Report 9132302 (Version 1)
Quarter: 2013Q1

REPORT INFORMATION
  Report Type: Spontaneous
  Country: BR (occurrence: BR)
  Receive Date: 20130301
  Receipt Date: 20130301
  Transmission Date: 20140127
  Serious: Yes (Other)
  Sender: FDA-Public Use
  Company Number: PHHY2013BR019976

PATIENT
  Sex: Female
  Weight: 23 kg

DRUGS (1)
  1. RITALIN LA [Suspect]
     Indication: ATTENTION DEFICIT/HYPERACTIVITY DISORDER
     Dosage: 1 DF, QD
     Route: 048
     Dates: start: 20130201

REACTIONS (6)
  - Paranoia [Unknown]
  - Hallucination [Unknown]
  - Fear [Unknown]
  - Screaming [Unknown]
  - Nightmare [Unknown]
  - Sleep terror [Unknown]
